FAERS Safety Report 4383622-6 (Version None)
Quarter: 2004Q2

REPORT INFORMATION
  Report Type: 
  Country: None (occurrence: None)
  Receive Date: 20040623
  Receipt Date: 20030606
  Transmission Date: 20050107
  Serious: Yes (Other)
  Sender: FDA-Public Use
  Company Number: PHBS2003BR06051

PATIENT
  Age: 46 Year
  Sex: Male
  Weight: 91 kg

DRUGS (4)
  1. LAMPRENE [Suspect]
     Indication: LEPROSY
     Route: 048
     Dates: start: 20020115, end: 20040115
  2. RIMACTANE [Suspect]
     Indication: LEPROSY
     Route: 048
     Dates: start: 20020115, end: 20040115
  3. DAPSONE [Suspect]
     Indication: LEPROSY
     Route: 048
     Dates: start: 20020115, end: 20040115
  4. PREDNISONE [Concomitant]

REACTIONS (4)
  - BLINDNESS UNILATERAL [None]
  - DIFFICULTY IN WALKING [None]
  - HEARING IMPAIRED [None]
  - OTORRHOEA [None]
